FAERS Safety Report 23439944 (Version 1)
Quarter: 2024Q1

REPORT INFORMATION
  Report Type: Spontaneous
  Country: GB (occurrence: GB)
  Receive Date: 20240124
  Receipt Date: 20240124
  Transmission Date: 20240409
  Serious: Yes (Other)
  Sender: FDA-Public Use
  Company Number: None

PATIENT
  Age: 52 Year
  Sex: Male
  Weight: 85 kg

DRUGS (8)
  1. SPIRONOLACTONE [Suspect]
     Active Substance: SPIRONOLACTONE
     Dosage: 100 MG, 1X/DAY (TAKE EVERY MORNING)
     Dates: start: 20231212, end: 20240119
  2. CARVEDILOL [Concomitant]
     Active Substance: CARVEDILOL
     Dosage: 1 DF, 2X/DAY
     Dates: start: 20231207
  3. CLOTRIMAZOLE [Concomitant]
     Active Substance: CLOTRIMAZOLE
     Dosage: APPLY 2-3 TIMES/DAY
     Route: 061
     Dates: start: 20231212, end: 20240109
  4. FOLIC ACID [Concomitant]
     Active Substance: FOLIC ACID
     Dosage: 1 DF, 1X/DAY, EVERY MORNING
     Dates: start: 20240116
  5. CHOLECALCIFEROL [Concomitant]
     Active Substance: CHOLECALCIFEROL
     Dosage: 1 DF, 1X/DAY, AS DIRECTED
     Dates: start: 20240116
  6. FUROSEMIDE [Concomitant]
     Active Substance: FUROSEMIDE
     Dosage: 1 DF, 1X/DAY, EACH MORNING FOR ONE WEEK
     Dates: start: 20240119
  7. OMEPRAZOLE [Concomitant]
     Active Substance: OMEPRAZOLE
     Indication: Hyperchlorhydria
     Dosage: 1 DF, 1X/DAY
     Dates: start: 20231128, end: 20240102
  8. THIAMINE [Concomitant]
     Active Substance: THIAMINE
     Dosage: 1 DF, 1X/DAY, EVERY MORNING
     Dates: start: 20240109

REACTIONS (2)
  - Blister [Recovered/Resolved]
  - Pruritus [Unknown]
